FAERS Safety Report 4398880-1 (Version None)
Quarter: 2004Q3

REPORT INFORMATION
  Report Type: 
  Country: None (occurrence: None)
  Receive Date: 20040712
  Receipt Date: 20040630
  Transmission Date: 20050211
  Serious: No
  Sender: FDA-Public Use
  Company Number: 2004UW08711

PATIENT
  Age: 61 Year
  Sex: Male
  Weight: 63.9572 kg

DRUGS (2)
  1. SEROQUEL [Suspect]
     Indication: DELIRIUM
     Dosage: 25 MG QD PO
     Route: 048
     Dates: start: 20040415, end: 20040430
  2. LABETALOL HCL [Concomitant]

REACTIONS (4)
  - ELECTROCARDIOGRAM QT CORRECTED INTERVAL PROLONGED [None]
  - ELECTROCARDIOGRAM QT PROLONGED [None]
  - HYPOTENSION [None]
  - VENTRICULAR TACHYCARDIA [None]
